FAERS Safety Report 19057987 (Version 1)
Quarter: 2021Q1

REPORT INFORMATION
  Report Type: Spontaneous
  Country: ID (occurrence: ID)
  Receive Date: 20210324
  Receipt Date: 20210324
  Transmission Date: 20210420
  Serious: Yes (Hospitalization, Other)
  Sender: FDA-Public Use
  Company Number: ID-ASTRAZENECA-2021A138014

PATIENT
  Age: 54 Year
  Sex: Male

DRUGS (1)
  1. IRESSA [Suspect]
     Active Substance: GEFITINIB
     Route: 048
     Dates: start: 20161020

REACTIONS (17)
  - Oedema peripheral [Unknown]
  - Quality of life decreased [Unknown]
  - Condition aggravated [Unknown]
  - Movement disorder [Unknown]
  - Malignant neoplasm progression [Unknown]
  - Neoplasm progression [Unknown]
  - Bone erosion [Unknown]
  - Therapy partial responder [Unknown]
  - Soft tissue mass [Unknown]
  - Pulmonary mass [Unknown]
  - Resorption bone increased [Unknown]
  - Hepatic cyst [Unknown]
  - Chest wall tumour [Unknown]
  - Dyspnoea [Unknown]
  - Performance status decreased [Unknown]
  - Pleural mass [Unknown]
  - Lymphadenopathy [Unknown]

NARRATIVE: CASE EVENT DATE: 20161222
